FAERS Safety Report 22708210 (Version 12)
Quarter: 2025Q3

REPORT INFORMATION
  Report Type: Report from Study
  Country: AR (occurrence: AR)
  Receive Date: 20230715
  Receipt Date: 20250728
  Transmission Date: 20251021
  Serious: Yes (Other)
  Sender: NOVARTIS
  Company Number: AR-002147023-NVSC2023AR156248

PATIENT
  Age: 58 Year
  Sex: Female
  Weight: 95 kg

DRUGS (7)
  1. COSENTYX [Suspect]
     Active Substance: SECUKINUMAB
     Indication: Psoriasis
     Route: 058
     Dates: start: 20190520
  2. COSENTYX [Suspect]
     Active Substance: SECUKINUMAB
     Indication: Psoriatic arthropathy
     Dosage: 300 MG, QMO (300 MG/300ML)
     Route: 058
     Dates: start: 20191112
  3. COSENTYX [Suspect]
     Active Substance: SECUKINUMAB
     Dosage: 300 MG, QMO
     Route: 058
     Dates: start: 201912
  4. COSENTYX [Suspect]
     Active Substance: SECUKINUMAB
     Route: 058
     Dates: end: 202305
  5. COSENTYX [Suspect]
     Active Substance: SECUKINUMAB
     Route: 058
     Dates: start: 202310
  6. COSENTYX [Suspect]
     Active Substance: SECUKINUMAB
     Dosage: 300 MG, QMO
     Route: 058
  7. COSENTYX [Suspect]
     Active Substance: SECUKINUMAB
     Route: 058
     Dates: start: 20241205

REACTIONS (36)
  - Dental fistula [Unknown]
  - Psoriatic arthropathy [Recovered/Resolved]
  - Bone pain [Unknown]
  - Arthralgia [Unknown]
  - Calcium deficiency [Unknown]
  - Psoriatic arthropathy [Unknown]
  - Bronchospasm [Recovered/Resolved]
  - Gingival ulceration [Unknown]
  - Oral infection [Unknown]
  - Oral disorder [Unknown]
  - Diarrhoea [Unknown]
  - Inflammation [Unknown]
  - Gastroenteritis bacterial [Recovered/Resolved]
  - Malaise [Unknown]
  - Vomiting [Unknown]
  - Gingival injury [Unknown]
  - Gastroenteritis viral [Recovered/Resolved]
  - Gastroenteritis [Recovered/Resolved]
  - Loose tooth [Unknown]
  - Pain [Unknown]
  - Skin infection [Unknown]
  - Mouth ulceration [Unknown]
  - Acne [Unknown]
  - Synovial cyst [Unknown]
  - Influenza [Unknown]
  - Gingival abscess [Unknown]
  - Bone deformity [Unknown]
  - Tooth infection [Unknown]
  - Psoriasis [Recovered/Resolved]
  - Nail discolouration [Unknown]
  - Nail disorder [Unknown]
  - Muscle spasms [Unknown]
  - Drug ineffective [Unknown]
  - Psoriasis [Unknown]
  - Urinary tract infection [Unknown]
  - Inappropriate schedule of product administration [Unknown]

NARRATIVE: CASE EVENT DATE: 20230601
